FAERS Safety Report 14295392 (Version 1)
Quarter: 2017Q4

REPORT INFORMATION
  Report Type: Spontaneous
  Country: US (occurrence: US)
  Receive Date: 20171215
  Receipt Date: 20171215
  Transmission Date: 20180321
  Serious: Yes (Hospitalization)
  Sender: FDA-Public Use
  Company Number: None

PATIENT
  Age: 54 Year
  Sex: Female

DRUGS (1)
  1. CAPECITABINE TAB 500 MG BER [Suspect]
     Active Substance: CAPECITABINE
     Indication: NEOPLASM MALIGNANT
     Dosage: 1500MG QAM 1000MG 14 DAYS ON, 7  PO
     Route: 048
     Dates: start: 20171011

REACTIONS (1)
  - Stomatitis [None]

NARRATIVE: CASE EVENT DATE: 20171101
